FAERS Safety Report 6372538-1 (Version None)
Quarter: 2009Q3

REPORT INFORMATION
  Report Type: 
  Country: None (occurrence: None)
  Receive Date: 20090924
  Receipt Date: 20080925
  Transmission Date: 20100115
  Serious: No
  Sender: FDA-Public Use
  Company Number: US-ASTRAZENECA-2008UW20301

PATIENT
  Age: 49 Year
  Sex: Female
  Weight: 77.1 kg

DRUGS (10)
  1. SEROQUEL [Suspect]
     Indication: PSYCHOTIC DISORDER
     Route: 048
  2. PROZAC [Concomitant]
  3. TRILEPTAL [Concomitant]
  4. TRAZODONE [Concomitant]
  5. AVAPRO [Concomitant]
  6. PREVACID [Concomitant]
  7. ACCOLATE [Concomitant]
  8. COMBIVENT [Concomitant]
  9. PIROXICAM [Concomitant]
  10. ALLERGY/SINUS [Concomitant]

REACTIONS (3)
  - FALL [None]
  - INJURY [None]
  - SOMNAMBULISM [None]
